FAERS Safety Report 4656693-7 (Version None)
Quarter: 2005Q2

REPORT INFORMATION
  Report Type: 
  Country: None (occurrence: None)
  Receive Date: 20050331
  Receipt Date: 20040928
  Transmission Date: 20051028
  Serious: No
  Sender: FDA-Public Use
  Company Number: UK093568

PATIENT
  Age: 30 Year
  Sex: Male
  Weight: 75 kg

DRUGS (5)
  1. NEULASTA [Suspect]
     Indication: CHEMOTHERAPY
     Dosage: 1 IN 3 WEEKS, SC
     Route: 058
     Dates: start: 20040830
  2. BLEOMYCIN SULFATE [Suspect]
     Dosage: 1 IN 1 WEEKS
     Dates: start: 20040823, end: 20041010
  3. VINBLASTINE SULFATE [Concomitant]
  4. CISPLATIN [Concomitant]
  5. CETIRIZINE HYDROCHLORIDE [Concomitant]

REACTIONS (1)
  - DERMATITIS ALLERGIC [None]
